FAERS Safety Report 14921805 (Version 2)
Quarter: 2018Q4

REPORT INFORMATION
  Report Type: Spontaneous
  Country: FR (occurrence: FR)
  Receive Date: 20180522
  Receipt Date: 20181026
  Transmission Date: 20190204
  Serious: Yes (Other)
  Sender: FDA-Public Use
  Company Number: FR-MERCK KGAA-2048199

PATIENT
  Age: 58 Year
  Sex: Female

DRUGS (1)
  1. EUTHYROX [Suspect]
     Active Substance: LEVOTHYROXINE SODIUM
     Indication: PRODUCT USED FOR UNKNOWN INDICATION
     Dates: start: 201708

REACTIONS (28)
  - Muscle spasms [None]
  - Loss of personal independence in daily activities [None]
  - Social avoidant behaviour [None]
  - Depression [None]
  - Headache [None]
  - Gait disturbance [None]
  - Impaired driving ability [None]
  - Apathy [None]
  - Blood thyroid stimulating hormone decreased [None]
  - Insomnia [None]
  - Disturbance in attention [None]
  - Pain [None]
  - Dizziness [None]
  - Amnesia [None]
  - Fatigue [None]
  - Palpitations [None]
  - Suicidal ideation [None]
  - Dyspnoea [None]
  - Hyperhidrosis [None]
  - Irritability [None]
  - Anxiety [None]
  - Feeling drunk [None]
  - Tri-iodothyronine decreased [None]
  - Tinnitus [Recovered/Resolved]
  - Visual impairment [None]
  - Malaise [None]
  - Pruritus [None]
  - Tri-iodothyronine increased [None]

NARRATIVE: CASE EVENT DATE: 201708
